FAERS Safety Report 22235167 (Version 1)
Quarter: 2023Q2

REPORT INFORMATION
  Report Type: Spontaneous
  Country: US (occurrence: US)
  Receive Date: 20230420
  Receipt Date: 20230420
  Transmission Date: 20230722
  Serious: Yes (Hospitalization, Other)
  Sender: FDA-Public Use
  Company Number: US-BRISTOL-MYERS SQUIBB COMPANY-2023-052847

PATIENT
  Age: 67 Year
  Sex: Female

DRUGS (1)
  1. POMALYST [Suspect]
     Active Substance: POMALIDOMIDE
     Indication: Migraine
     Dosage: TAKE 1 CAPSULE BY MOUTH, 2HRS AWAY
     Route: 048

REACTIONS (7)
  - Pain in extremity [Not Recovered/Not Resolved]
  - Somnolence [Unknown]
  - Pneumonia [Not Recovered/Not Resolved]
  - Back pain [Not Recovered/Not Resolved]
  - Off label use [Unknown]
  - Asthma [Unknown]
  - Fatigue [Unknown]
